FAERS Safety Report 13163765 (Version 1)
Quarter: 2017Q1

REPORT INFORMATION
  Report Type: Spontaneous
  Country: US (occurrence: US)
  Receive Date: 20170130
  Receipt Date: 20170130
  Transmission Date: 20170428
  Serious: No
  Sender: FDA-Public Use
  Company Number: US-LEO PHARMA-245599

PATIENT
  Sex: Female

DRUGS (1)
  1. PICATO [Suspect]
     Active Substance: INGENOL MEBUTATE
     Indication: ACTINIC KERATOSIS
     Route: 061
     Dates: start: 20170122, end: 20170122

REACTIONS (5)
  - Dermatitis contact [Not Recovered/Not Resolved]
  - Drug administered at inappropriate site [Unknown]
  - Chest pain [Recovered/Resolved]
  - Incorrect drug administration duration [Unknown]
  - Dizziness [Not Recovered/Not Resolved]

NARRATIVE: CASE EVENT DATE: 20170123
